FAERS Safety Report 10667084 (Version 1)
Quarter: 2014Q4

REPORT INFORMATION
  Report Type: Spontaneous
  Country: US (occurrence: None)
  Receive Date: 20141218
  Receipt Date: 20141218
  Transmission Date: 20150529
  Serious: Yes (Hospitalization, Other)
  Sender: FDA-Public Use
  Company Number: US-INVENTIA-000001

PATIENT
  Age: 63 Year
  Sex: Female

DRUGS (21)
  1. LANSOPRAZOLE (LANSOPRAZOLE) [Suspect]
     Active Substance: LANSOPRAZOLE
     Indication: PRODUCT USED FOR UNKNOWN INDICATION
  2. VITAMIN D [Concomitant]
     Active Substance: CHOLECALCIFEROL
  3. MECLIZINE [Concomitant]
     Active Substance: MECLIZINE\MECLIZINE HYDROCHLORIDE
  4. METFORMIN HYDROCHLORIDE. [Suspect]
     Active Substance: METFORMIN HYDROCHLORIDE
     Indication: PRODUCT USED FOR UNKNOWN INDICATION
     Dosage: INTRALESIONAL
  5. AVASTIN [Suspect]
     Active Substance: BEVACIZUMAB
     Indication: COLON CANCER METASTATIC
  6. LOPERAMIDE [Concomitant]
     Active Substance: LOPERAMIDE
  7. ZANTAC [Concomitant]
     Active Substance: RANITIDINE HYDROCHLORIDE
  8. CELECOXIB. [Concomitant]
     Active Substance: CELECOXIB
  9. ZOLPIDEM [Concomitant]
     Active Substance: ZOLPIDEM\ZOLPIDEM TARTRATE
  10. CITALOPRAM [Concomitant]
     Active Substance: CITALOPRAM HYDROBROMIDE
  11. ZOFRAN [Concomitant]
     Active Substance: ONDANSETRON HYDROCHLORIDE
  12. FOLINIC ACID (FOLINIC ACID) [Suspect]
     Active Substance: LEUCOVORIN
     Indication: METASTASIS
  13. BENADRYL [Concomitant]
     Active Substance: DIPHENHYDRAMINE HYDROCHLORIDE
  14. XELODA [Suspect]
     Active Substance: CAPECITABINE
     Indication: COLON CANCER METASTATIC
  15. FLUOROURACIL (FLUOROURACIL) [Suspect]
     Active Substance: FLUOROURACIL
     Indication: COLON CANCER METASTATIC
  16. IRINOTECAN HYDROCHLORIDE. [Suspect]
     Active Substance: IRINOTECAN HYDROCHLORIDE
     Indication: COLON CANCER METASTATIC
  17. LORAZEPAM. [Concomitant]
     Active Substance: LORAZEPAM
  18. HYDROCODONE [Concomitant]
     Active Substance: HYDROCODONE
  19. METOPROLOL [Concomitant]
     Active Substance: METOPROLOL
  20. LIPITOR [Concomitant]
     Active Substance: ATORVASTATIN CALCIUM
  21. AMITRIPTYLINE [Concomitant]
     Active Substance: AMITRIPTYLINE

REACTIONS (15)
  - Retroperitoneal cancer [None]
  - Hypomagnesaemia [None]
  - Malabsorption [None]
  - Metastases to peritoneum [None]
  - Dental operation [None]
  - Asthenia [None]
  - Hypophagia [None]
  - Nausea [None]
  - Diabetic enteropathy [None]
  - Vomiting [None]
  - Alopecia [None]
  - Condition aggravated [None]
  - Abdominal hernia [None]
  - Carcinoembryonic antigen increased [None]
  - Diarrhoea [None]
